FAERS Safety Report 7534827-4 (Version None)
Quarter: 2011Q2

REPORT INFORMATION
  Report Type: 
  Country: None (occurrence: None)
  Receive Date: 20110609
  Receipt Date: 20080924
  Transmission Date: 20111010
  Serious: Yes (Other)
  Sender: FDA-Public Use
  Company Number: PHHY2008GB09267

PATIENT
  Sex: Male

DRUGS (3)
  1. CLOMIPRAMINE HYDROCHLORIDE [Concomitant]
     Indication: DEPRESSION
     Dosage: 200 MG, QD
     Route: 048
     Dates: start: 20080515
  2. THIAMINE [Concomitant]
     Indication: ALCOHOL ABUSE
     Dosage: 100 MG, QD
     Route: 048
     Dates: start: 20080513
  3. CLOZAPINE [Suspect]
     Indication: SCHIZOPHRENIA
     Dosage: 300 MG
     Dates: start: 20080515

REACTIONS (1)
  - HERPES ZOSTER [None]
